FAERS Safety Report 25704039 (Version 1)
Quarter: 2025Q3

REPORT INFORMATION
  Report Type: Spontaneous
  Country: EU (occurrence: EU)
  Receive Date: 20250820
  Receipt Date: 20250820
  Transmission Date: 20251020
  Serious: Yes (Life-Threatening, Hospitalization, Other)
  Sender: GLAXOSMITHKLINE
  Company Number: None

PATIENT
  Age: 84 Year
  Sex: Male
  Weight: 85 kg

DRUGS (1)
  1. VALACYCLOVIR HYDROCHLORIDE [Suspect]
     Active Substance: VALACYCLOVIR HYDROCHLORIDE
     Indication: Herpes zoster
     Dosage: 1 G, TID
     Route: 065

REACTIONS (2)
  - Confusional state [Not Recovered/Not Resolved]
  - Toxicity to various agents [Not Recovered/Not Resolved]

NARRATIVE: CASE EVENT DATE: 20250809
